FAERS Safety Report 7233321-8 (Version None)
Quarter: 2011Q1

REPORT INFORMATION
  Report Type: 
  Country: None (occurrence: None)
  Receive Date: 20110119
  Receipt Date: 20110107
  Transmission Date: 20110831
  Serious: Yes (Death, Hospitalization, Other)
  Sender: FDA-Public Use
  Company Number: US-ELI_LILLY_AND_COMPANY-US201010007093

PATIENT
  Sex: Female

DRUGS (11)
  1. LASIX [Concomitant]
  2. CITALOPRAM [Concomitant]
  3. FORTEO [Suspect]
     Indication: OSTEOPOROSIS
     Dosage: 20 UG, DAILY (1/D)
     Dates: end: 20101023
  4. PRILOSEC [Concomitant]
  5. LYRICA [Concomitant]
  6. TRICOR [Concomitant]
  7. VITAMIN B-12 [Concomitant]
     Route: 030
  8. ARICEPT [Concomitant]
  9. LEVOTHYROXINE [Concomitant]
  10. ALDACTONE [Concomitant]
  11. ACETAMINOPHEN [Concomitant]
     Dosage: UNK, UNKNOWN
     Route: 065

REACTIONS (5)
  - HEPATIC CIRRHOSIS [None]
  - COAGULOPATHY [None]
  - PAIN [None]
  - BONE DISORDER [None]
  - MULTI-ORGAN FAILURE [None]
